FAERS Safety Report 8878782 (Version 3)
Quarter: 2012Q4

REPORT INFORMATION
  Report Type: 
  Country: GB (occurrence: GB)
  Receive Date: 20121026
  Receipt Date: 20121203
  Transmission Date: 20130627
  Serious: Yes (Hospitalization)
  Sender: FDA-Public Use
  Company Number: PHHO2012GB015452

PATIENT
  Age: 14 Year
  Sex: Male
  Weight: 40.6 kg

DRUGS (1)
  1. ACZ885 [Suspect]
     Indication: JUVENILE ARTHRITIS
     Dosage: 4 mg, UNK
     Route: 058
     Dates: start: 20110830, end: 20121004

REACTIONS (1)
  - Lower respiratory tract infection [Unknown]
